FAERS Safety Report 15428081 (Version 2)
Quarter: 2018Q4

REPORT INFORMATION
  Report Type: Spontaneous
  Country: US (occurrence: US)
  Receive Date: 20180926
  Receipt Date: 20181220
  Transmission Date: 20190204
  Serious: Yes (Other)
  Sender: FDA-Public Use
  Company Number: US-PRINSTON PHARMACEUTICAL INC.-2018PRN00487

PATIENT
  Sex: Female

DRUGS (4)
  1. LETROZOLE. [Concomitant]
     Active Substance: LETROZOLE
     Dosage: 1 UNK, 1X/DAY
  2. VALSARTAN. [Suspect]
     Active Substance: VALSARTAN
     Indication: HYPERTENSION
     Dosage: 320 MG, 1X/DAY
     Route: 048
     Dates: start: 20180502, end: 201807
  3. LEVOTHYROXINE. [Concomitant]
     Active Substance: LEVOTHYROXINE
  4. POTASSIUM [Concomitant]
     Active Substance: POTASSIUM

REACTIONS (4)
  - Dyspnoea [Unknown]
  - Pain [Unknown]
  - Back injury [Unknown]
  - Cough [Unknown]

NARRATIVE: CASE EVENT DATE: 2018
